FAERS Safety Report 5934328-0 (Version None)
Quarter: 2008Q4

REPORT INFORMATION
  Report Type: 
  Country: None (occurrence: None)
  Receive Date: 20081029
  Receipt Date: 20081021
  Transmission Date: 20090506
  Serious: Yes (Other)
  Sender: FDA-Public Use
  Company Number: PHHY2008GB17797

PATIENT
  Sex: Female

DRUGS (10)
  1. ACLASTA [Suspect]
     Indication: OSTEOPOROSIS
     Dosage: 5 MG/100ML
     Route: 042
     Dates: start: 20080215
  2. PAMIDRONATE DISODIUM [Suspect]
     Dosage: UNK
     Dates: start: 20040101
  3. CLOPIDROGEL HYDROGEN SULPHATE [Concomitant]
     Indication: MYOCARDIAL ISCHAEMIA
     Dosage: 75 MG, QD
  4. DILTIAZEM HCL [Concomitant]
     Indication: MYOCARDIAL ISCHAEMIA
     Dosage: 180 MG, QD
     Route: 048
  5. ISOSORBIDE MONONITRATE [Concomitant]
     Indication: MYOCARDIAL ISCHAEMIA
     Dosage: 60 MG, QD
     Route: 048
  6. LEFLUNOMIDE [Concomitant]
     Indication: RHEUMATOID ARTHRITIS
     Dosage: 20 MG, QD
  7. OMEPRAZOLE [Concomitant]
     Indication: ABDOMINAL DISCOMFORT
     Dosage: 30 MG, QD
     Route: 048
  8. SIMVASTATIN [Concomitant]
     Indication: HYPERCHOLESTEROLAEMIA
     Dosage: 40MG ONCE AT NIGHT
  9. ASPIRIN [Concomitant]
     Indication: MYOCARDIAL ISCHAEMIA
     Dosage: 75 MG, QD
  10. ATENOLOL [Concomitant]
     Indication: HYPERTENSION
     Dosage: 50 MG, QD
     Route: 048

REACTIONS (15)
  - BONE DEBRIDEMENT [None]
  - BONE DISORDER [None]
  - DISCOMFORT [None]
  - EATING DISORDER [None]
  - EXCESSIVE GRANULATION TISSUE [None]
  - GINGIVAL INFECTION [None]
  - INFECTION [None]
  - ORAL DISORDER [None]
  - OSTEONECROSIS [None]
  - PAIN [None]
  - PAIN IN JAW [None]
  - SEQUESTRECTOMY [None]
  - STOMATITIS [None]
  - SWELLING [None]
  - TOOTH EXTRACTION [None]
